FAERS Safety Report 19053786 (Version 1)
Quarter: 2021Q1

REPORT INFORMATION
  Report Type: Report from Study
  Country: IT (occurrence: IT)
  Receive Date: 20210324
  Receipt Date: 20210324
  Transmission Date: 20210420
  Serious: Yes (Other)
  Sender: FDA-Public Use
  Company Number: IT-TEVA-2021-IT-1893187

PATIENT
  Age: 36 Year
  Sex: Female
  Weight: 111 kg

DRUGS (1)
  1. CARBOPLATIN. [Suspect]
     Active Substance: CARBOPLATIN
     Indication: BREAST CANCER STAGE IV
     Dosage: 750 MG
     Route: 042
     Dates: start: 20201111

REACTIONS (2)
  - Thrombocytopenia [Unknown]
  - Haemoglobinaemia [Unknown]

NARRATIVE: CASE EVENT DATE: 20210224
